FAERS Safety Report 8048400-5 (Version None)
Quarter: 2012Q1

REPORT INFORMATION
  Report Type: 
  Country: None (occurrence: None)
  Receive Date: 20120117
  Receipt Date: 20120111
  Transmission Date: 20120608
  Serious: No
  Sender: FDA-Public Use
  Company Number: US-PFIZER INC-2012008897

PATIENT
  Sex: Female
  Weight: 67.574 kg

DRUGS (3)
  1. TOVIAZ [Suspect]
     Indication: BLADDER DISORDER
     Dosage: 4 MG, 1X/DAY
     Route: 048
     Dates: start: 20111201
  2. EVISTA [Concomitant]
     Dosage: 60 MG, 1X/DAY
  3. TOPROL-XL [Concomitant]
     Dosage: 12.5 MG, 1X/DAY

REACTIONS (1)
  - POLLAKIURIA [None]
